FAERS Safety Report 9837435 (Version 1)
Quarter: 2014Q1

REPORT INFORMATION
  Report Type: Spontaneous
  Country: US (occurrence: US)
  Receive Date: 20140123
  Receipt Date: 20140123
  Transmission Date: 20141002
  Serious: Yes (Hospitalization)
  Sender: FDA-Public Use
  Company Number: US-MYLANLABS-2014S1000960

PATIENT
  Age: 73 Year
  Sex: Female

DRUGS (6)
  1. REQUIP [Suspect]
     Indication: PARKINSON^S DISEASE
     Route: 048
     Dates: start: 2001
  2. ROPINIROLE HYDROCHLORIDE TABLETS [Suspect]
     Indication: PARKINSON^S DISEASE
     Route: 048
     Dates: start: 2011
  3. ROPINIROLE HYDROCHLORIDE TABLETS [Suspect]
     Indication: PARKINSON^S DISEASE
     Route: 048
     Dates: start: 2011
  4. THYROXINE [Concomitant]
  5. AMANTADINE [Concomitant]
  6. CO-CARELDOPA [Concomitant]

REACTIONS (5)
  - Drug effect decreased [Unknown]
  - Hip fracture [Unknown]
  - Depression [Recovered/Resolved]
  - Syncope [Unknown]
  - Malaise [Unknown]
